FAERS Safety Report 16360036 (Version 1)
Quarter: 2019Q2

REPORT INFORMATION
  Report Type: Spontaneous
  Country: CN (occurrence: CN)
  Receive Date: 20190528
  Receipt Date: 20190528
  Transmission Date: 20190711
  Serious: Yes (Other)
  Sender: FDA-Public Use
  Company Number: CN-ROCHE-2322968

PATIENT
  Age: 67 Year
  Sex: Male

DRUGS (6)
  1. APATINIB MESYLATE [Concomitant]
     Active Substance: APATINIB
     Indication: ADENOCARCINOMA
     Route: 048
     Dates: end: 20160321
  2. XELODA [Suspect]
     Active Substance: CAPECITABINE
     Indication: ADENOCARCINOMA
     Route: 048
     Dates: start: 20150612
  3. ERBITUX [Concomitant]
     Active Substance: CETUXIMAB
     Indication: ADENOCARCINOMA
     Route: 065
     Dates: start: 20170715
  4. IRINOTECAN [Concomitant]
     Active Substance: IRINOTECAN
     Indication: ADENOCARCINOMA
     Route: 065
     Dates: start: 20170715
  5. AVASTIN [Suspect]
     Active Substance: BEVACIZUMAB
     Indication: ADENOCARCINOMA
     Route: 065
     Dates: start: 20170913
  6. APATINIB MESYLATE [Concomitant]
     Active Substance: APATINIB
     Route: 048
     Dates: end: 20160711

REACTIONS (3)
  - Tumour marker increased [Unknown]
  - Cardiac valve disease [Unknown]
  - Osteitis [Unknown]
